FAERS Safety Report 9847231 (Version 2)
Quarter: 2014Q1

REPORT INFORMATION
  Report Type: Report from Study
  Country: US (occurrence: US)
  Receive Date: 20140127
  Receipt Date: 20140225
  Transmission Date: 20141002
  Serious: Yes (Death, Other)
  Sender: FDA-Public Use
  Company Number: US-ACTELION-A-NJ2014-93888

PATIENT
  Age: 66 Year
  Sex: Female

DRUGS (1)
  1. TRACLEER [Suspect]
     Indication: PULMONARY ARTERIAL HYPERTENSION
     Dosage: UNK
     Route: 048
     Dates: end: 20131114

REACTIONS (5)
  - Sudden death [Fatal]
  - Atrial fibrillation [Unknown]
  - Cardiac ablation [Unknown]
  - Pulmonary embolism [Unknown]
  - Arrhythmia [Unknown]
